FAERS Safety Report 6460879-9 (Version None)
Quarter: 2009Q4

REPORT INFORMATION
  Report Type: 
  Country: None (occurrence: None)
  Receive Date: 20091130
  Receipt Date: 20091123
  Transmission Date: 20100525
  Serious: Yes (Other)
  Sender: FDA-Public Use
  Company Number: US-SP-2009-02677

PATIENT
  Age: 17 Year
  Sex: Female

DRUGS (7)
  1. MENACTRA [Suspect]
     Indication: IMMUNISATION
     Route: 030
     Dates: start: 20090601
  2. MENACTRA [Suspect]
     Route: 030
     Dates: start: 20090601
  3. MENACTRA [Suspect]
     Route: 030
     Dates: start: 20090601
  4. MENACTRA [Suspect]
     Route: 030
     Dates: start: 20090601
  5. TUBERSOL [Suspect]
     Indication: TUBERCULIN TEST
     Route: 058
     Dates: start: 20090601
  6. TUBERSOL [Suspect]
     Route: 058
     Dates: start: 20090601
  7. TUBERSOL [Suspect]
     Route: 058
     Dates: start: 20090601

REACTIONS (9)
  - COUGH [None]
  - FATIGUE [None]
  - INCORRECT ROUTE OF DRUG ADMINISTRATION [None]
  - INFECTIOUS MONONUCLEOSIS [None]
  - LYME DISEASE [None]
  - LYMPHADENITIS [None]
  - LYMPHADENOPATHY [None]
  - OROPHARYNGEAL PAIN [None]
  - PAIN IN JAW [None]
